FAERS Safety Report 12775963 (Version 2)
Quarter: 2016Q4

REPORT INFORMATION
  Report Type: Report from Study
  Country: US (occurrence: US)
  Receive Date: 20160923
  Receipt Date: 20161108
  Transmission Date: 20170207
  Serious: Yes (Death, Life-Threatening)
  Sender: FDA-Public Use
  Company Number: US-HORIZON-HZNP-ACT-302-0002-2016

PATIENT
  Age: 24 Year
  Sex: Male
  Weight: 78 kg

DRUGS (8)
  1. PROAIR ORAL INHALER [Concomitant]
     Dosage: 2 PUFFS QID
     Route: 055
     Dates: start: 20160823
  2. VIRTUSSIN AC SYRUP [Concomitant]
     Dosage: 1 CAPFUL QID
     Dates: start: 20160823
  3. BENZONATATE. [Concomitant]
     Active Substance: BENZONATATE
     Dosage: 100 MG TID
     Dates: start: 20160823
  4. LEVOFLOXACIN. [Concomitant]
     Active Substance: LEVOFLOXACIN
     Dosage: 500 MG ONCE/DAY
     Dates: start: 20160721, end: 20160728
  5. IDEBENONE [Concomitant]
     Active Substance: IDEBENONE
     Indication: SUPPLEMENTATION THERAPY
     Dosage: 945 MG DAILY
     Route: 048
     Dates: start: 20110101, end: 20160912
  6. MOXIFLOXACIN. [Concomitant]
     Active Substance: MOXIFLOXACIN
     Dosage: 400 MG ONCE/DAY
     Route: 048
     Dates: start: 20160823, end: 20160830
  7. ACTIMMUNE [Suspect]
     Active Substance: INTERFERON GAMMA-1B
     Indication: FRIEDREICH^S ATAXIA
     Dosage: 100 ?G/M2 TIW
     Route: 058
     Dates: start: 20160418, end: 20160907
  8. IBUPROFEN. [Concomitant]
     Active Substance: IBUPROFEN
     Indication: HEADACHE
     Dosage: 400 MG DAILY PRN
     Route: 048
     Dates: start: 20160507, end: 20160912

REACTIONS (2)
  - Eosinophilic myocarditis [Fatal]
  - Cardiogenic shock [Fatal]

NARRATIVE: CASE EVENT DATE: 20160912
